FAERS Safety Report 16233259 (Version 3)
Quarter: 2019Q4

REPORT INFORMATION
  Report Type: Report from Study
  Country: US (occurrence: US)
  Receive Date: 20190424
  Receipt Date: 20191218
  Transmission Date: 20200122
  Serious: Yes (Other)
  Sender: FDA-Public Use
  Company Number: US-ROCHE-2305469

PATIENT
  Sex: Male
  Weight: 65.83 kg

DRUGS (2)
  1. OCREVUS [Suspect]
     Active Substance: OCRELIZUMAB
     Indication: PRIMARY PROGRESSIVE MULTIPLE SCLEROSIS
     Dosage: DATE OF TREATMENT: 14-SEP-2017, 28-SEP-2017, 29-MAR-2018, 02-OCT-2018,11-JUN-2019
     Route: 065
     Dates: start: 20170914
  2. OCREVUS [Suspect]
     Active Substance: OCRELIZUMAB
     Route: 065
     Dates: start: 20170928

REACTIONS (1)
  - Urinary tract infection [Not Recovered/Not Resolved]
